FAERS Safety Report 24367651 (Version 4)
Quarter: 2024Q4

REPORT INFORMATION
  Report Type: Spontaneous
  Country: US (occurrence: US)
  Receive Date: 20240926
  Receipt Date: 20241129
  Transmission Date: 20250114
  Serious: Yes (Other)
  Sender: SANDOZ
  Company Number: US-SANDOZ-SDZ2024US082664

PATIENT
  Age: 56 Year
  Sex: Female

DRUGS (12)
  1. TERIFLUNOMIDE [Suspect]
     Active Substance: TERIFLUNOMIDE
     Indication: Product used for unknown indication
     Dosage: UNK
     Route: 065
     Dates: start: 202402
  2. VALACYCLOVIR HYDROCHLORIDE [Suspect]
     Active Substance: VALACYCLOVIR HYDROCHLORIDE
     Indication: Product used for unknown indication
     Dosage: UNK
     Route: 065
  3. BACLOFEN [Concomitant]
     Active Substance: BACLOFEN
     Indication: Product used for unknown indication
     Dosage: 10 MG, TAKE 1 TABLET(S) ORAL HS, 90 DAYS, 1 REFILL, FOR A TOTAL OF 90
     Route: 048
     Dates: start: 20240718
  4. GABAPENTIN [Concomitant]
     Active Substance: GABAPENTIN
     Indication: Product used for unknown indication
     Dosage: 300 MG, TID, 1 TABLET(S) PO 1 TABLET(S) ORAL THREE TIMES A DAY, 30 DAYS, 1 REFILL, FOR A TOTAL OF 90
     Route: 048
     Dates: start: 20240909
  5. KESIMPTA [Concomitant]
     Active Substance: OFATUMUMAB
     Indication: Multiple sclerosis
     Dosage: 20 G, QMO, PEN 20 MG/0.4 ML SUBCUTANEOUS PEN INJECTOR
     Route: 058
     Dates: start: 20240718
  6. KESIMPTA [Concomitant]
     Active Substance: OFATUMUMAB
     Dosage: 20 MG,LOADING DOSE. ONE DOSE PER WEEK FOR 3 WEEKS
     Route: 058
     Dates: start: 20240815
  7. PANTOPRAZOLE [Concomitant]
     Active Substance: PANTOPRAZOLE
     Indication: Product used for unknown indication
     Dosage: 40 MG, QD, DELAYED RELEASE
     Route: 048
  8. PROVIGIL [Concomitant]
     Active Substance: MODAFINIL
     Indication: Fatigue
     Dosage: 100 MG, QD, TAKE 1 TABLET(S) ORAL QPM, 90 DAYS, 1 REFILL, FOR A TOTAL OF 90,
     Route: 048
     Dates: start: 20240802
  9. PROVIGIL [Concomitant]
     Active Substance: MODAFINIL
     Indication: Malaise
     Dosage: 200 MG, QD, TAKE 1 TABLET(S) ORAL QAM, 90 DAYS, 1 REFILL, FOR A TOTAL OF 90,
     Route: 048
     Dates: start: 20240718
  10. TRAZODONE [Concomitant]
     Active Substance: TRAZODONE HYDROCHLORIDE
     Indication: Insomnia
     Dosage: 100 MG, TAKE 1 TABLET(S) ORAL HS, 90 DAYS
     Route: 048
     Dates: start: 20240718
  11. TYLENOL ARTHRITIS PAIN [Concomitant]
     Active Substance: ACETAMINOPHEN
     Indication: Product used for unknown indication
     Dosage: 650 MG, BID, TABLET,EXTENDED RELEASE
     Route: 048
  12. VITAMIN D [Concomitant]
     Active Substance: VITAMIN D NOS
     Indication: Vitamin D deficiency
     Dosage: 1 DF, QD, 10,000 UNITS
     Route: 065
     Dates: start: 20231229

REACTIONS (12)
  - Bone disorder [Unknown]
  - Fatigue [Unknown]
  - Band sensation [Unknown]
  - Drug intolerance [Unknown]
  - Tremor [Recovered/Resolved]
  - Herpes zoster [Unknown]
  - Feeling abnormal [Not Recovered/Not Resolved]
  - Urinary incontinence [Unknown]
  - Neuralgia [Unknown]
  - Headache [Recovered/Resolved]
  - Alopecia [Unknown]
  - Nasopharyngitis [Recovered/Resolved]

NARRATIVE: CASE EVENT DATE: 20240815
